FAERS Safety Report 9527941 (Version 1)
Quarter: 2013Q1

REPORT INFORMATION
  Report Type: Spontaneous
  Country: US (occurrence: None)
  Receive Date: 20130313
  Receipt Date: 20130313
  Transmission Date: 20140127
  Serious: No
  Sender: FDA-Public Use
  Company Number: 1000027424

PATIENT
  Age: 61 Year
  Sex: Female

DRUGS (7)
  1. SAVELLA [Suspect]
     Indication: FIBROMYALGIA
     Dates: start: 20120124
  2. SYNTHROID (LEVOTHYROXINE) [Concomitant]
  3. PROAIR HFA (SALBUTAMOL SULFATE) (SALBUTAMOL SULFATE) [Concomitant]
  4. TRAMADOL (TRAMADOL) (TRAMADOL) [Concomitant]
  5. NEXIUM (ESOMEPRAZOLE) (ESOMEPRAZOLE) [Concomitant]
  6. LOVASTATIN (LOVASTATIN) (LOVASTATIN) [Concomitant]
  7. ELMIRON [Suspect]

REACTIONS (1)
  - Nausea [None]
